FAERS Safety Report 13665574 (Version 2)
Quarter: 2017Q3

REPORT INFORMATION
  Report Type: Spontaneous
  Country: FR (occurrence: FR)
  Receive Date: 20170619
  Receipt Date: 20170707
  Transmission Date: 20171127
  Serious: Yes (Other)
  Sender: FDA-Public Use
  Company Number: FR-BAYER-2017-113838

PATIENT
  Age: 39 Year
  Sex: Female

DRUGS (1)
  1. MIRENA [Suspect]
     Active Substance: LEVONORGESTREL
     Indication: CONTRACEPTION
     Dosage: 20 MCG/24HR, CONT
     Route: 015
     Dates: start: 20051201, end: 20170522

REACTIONS (9)
  - Libido decreased [Recovered/Resolved]
  - Weight increased [Recovering/Resolving]
  - Visual impairment [Recovered/Resolved]
  - Abdominal distension [Recovered/Resolved]
  - Amenorrhoea [Unknown]
  - Pain [Recovered/Resolved]
  - Migraine [Recovered/Resolved]
  - Acne [Recovered/Resolved]
  - Depression [Recovered/Resolved]

NARRATIVE: CASE EVENT DATE: 2006
